FAERS Safety Report 23806987 (Version 1)
Quarter: 2024Q2

REPORT INFORMATION
  Report Type: Report from Study
  Country: US (occurrence: US)
  Receive Date: 20240502
  Receipt Date: 20240502
  Transmission Date: 20240716
  Serious: Yes (Other)
  Sender: FDA-Public Use
  Company Number: US-JNJFOC-20240460542

PATIENT
  Age: 39 Year
  Sex: Male

DRUGS (4)
  1. SIMPONI [Suspect]
     Active Substance: GOLIMUMAB
     Indication: Polyarteritis nodosa
     Route: 058
     Dates: start: 20210218
  2. CALCIUM GLUCONATE [Concomitant]
     Active Substance: CALCIUM GLUCONATE
  3. MULTI VITAMIN [ASCORBIC ACID;COLECALCIFEROL;NICOTINAMIDE;PANTHENOL;PYR [Concomitant]
  4. PREDNISONE [Concomitant]
     Active Substance: PREDNISONE

REACTIONS (3)
  - Polyarteritis nodosa [Unknown]
  - Infection [Unknown]
  - Off label use [Unknown]

NARRATIVE: CASE EVENT DATE: 20210218
